FAERS Safety Report 25191504 (Version 1)
Quarter: 2025Q2

REPORT INFORMATION
  Report Type: Report from Study
  Country: CA (occurrence: CA)
  Receive Date: 20250414
  Receipt Date: 20250414
  Transmission Date: 20250717
  Serious: Yes (Hospitalization, Other)
  Sender: SANDOZ
  Company Number: CA-002147023-NVSC2021CA258326

PATIENT
  Sex: Female

DRUGS (4)
  1. HYRIMOZ [Suspect]
     Active Substance: ADALIMUMAB-ADAZ
     Indication: Crohn^s disease
     Dosage: 160 MG, Q2W (LAST DOSE)
     Route: 058
     Dates: start: 20211103
  2. HYRIMOZ [Suspect]
     Active Substance: ADALIMUMAB-ADAZ
     Dosage: 40 MG, Q2W
     Route: 058
     Dates: end: 20241220
  3. HYRIMOZ [Suspect]
     Active Substance: ADALIMUMAB-ADAZ
     Dosage: 40 MG, Q2W (40 MG S.C. EVERY TWO WEEKS)
     Route: 058
     Dates: start: 20211119
  4. HYRIMOZ [Suspect]
     Active Substance: ADALIMUMAB-ADAZ
     Dosage: 40 MG, BIW
     Route: 058
     Dates: start: 20211119

REACTIONS (6)
  - Exposure during pregnancy [Unknown]
  - Therapy interrupted [Unknown]
  - General physical health deterioration [Unknown]
  - Arthralgia [Unknown]
  - Abdominal pain [Unknown]
  - Circumstance or information capable of leading to medication error [Unknown]
